FAERS Safety Report 4807547-4 (Version None)
Quarter: 2005Q4

REPORT INFORMATION
  Report Type: 
  Country: None (occurrence: None)
  Receive Date: 20051020
  Receipt Date: 20051007
  Transmission Date: 20060501
  Serious: Yes (Death)
  Sender: FDA-Public Use
  Company Number: 2005S1000214

PATIENT
  Age: 76 Year
  Sex: Female

DRUGS (3)
  1. CUBICIN [Suspect]
     Indication: STAPHYLOCOCCAL INFECTION
     Dosage: 6 MG/KG;Q24H
  2. VANCOMYCIN [Concomitant]
  3. LINEZOLID [Concomitant]

REACTIONS (1)
  - DEATH [None]
